FAERS Safety Report 24924129 (Version 3)
Quarter: 2025Q4

REPORT INFORMATION
  Report Type: Spontaneous
  Country: GB (occurrence: GB)
  Receive Date: 20250204
  Receipt Date: 20251017
  Transmission Date: 20260118
  Serious: Yes (Other)
  Sender: ELI LILLY AND COMPANY
  Company Number: None

PATIENT
  Age: 41 Year
  Sex: Female
  Weight: 83 kg

DRUGS (13)
  1. MOUNJARO [Suspect]
     Active Substance: TIRZEPATIDE
     Indication: Weight control
     Dosage: 2.5 MG, WEEKLY (1/W)
     Route: 065
     Dates: start: 20241204
  2. MOUNJARO [Suspect]
     Active Substance: TIRZEPATIDE
     Indication: Weight control
     Dosage: 2.5 MG, WEEKLY (1/W)
     Route: 065
     Dates: start: 20241204
  3. MOUNJARO [Suspect]
     Active Substance: TIRZEPATIDE
     Indication: Food craving
  4. MOUNJARO [Suspect]
     Active Substance: TIRZEPATIDE
     Indication: Food craving
  5. MOUNJARO [Suspect]
     Active Substance: TIRZEPATIDE
     Indication: Weight control
     Dosage: 5 MG, UNKNOWN
     Route: 065
     Dates: end: 20250116
  6. MOUNJARO [Suspect]
     Active Substance: TIRZEPATIDE
     Indication: Weight control
     Dosage: 5 MG, UNKNOWN
     Route: 065
     Dates: end: 20250116
  7. MOUNJARO [Suspect]
     Active Substance: TIRZEPATIDE
     Indication: Food craving
  8. MOUNJARO [Suspect]
     Active Substance: TIRZEPATIDE
     Indication: Food craving
  9. AMITRIPTYLINE HYDROCHLORIDE [Concomitant]
     Active Substance: AMITRIPTYLINE HYDROCHLORIDE
     Indication: Fatigue
     Dosage: 10 MG, UNKNOWN
     Route: 065
     Dates: start: 20100101
  10. VALACYCLOVIR HYDROCHLORIDE [Concomitant]
     Active Substance: VALACYCLOVIR HYDROCHLORIDE
     Indication: Herpes virus infection
     Dosage: 500 MG, UNKNOWN
     Route: 065
     Dates: start: 20100101
  11. LOSARTAN [Concomitant]
     Active Substance: LOSARTAN
     Indication: Hypertension
     Dosage: 50 MG, UNKNOWN
     Route: 065
     Dates: start: 20220101
  12. LISDEXAMFETAMINE DIMESYLATE [Concomitant]
     Active Substance: LISDEXAMFETAMINE DIMESYLATE
     Indication: Attention deficit hyperactivity disorder
     Dosage: 30 MG, UNKNOWN
     Route: 065
     Dates: start: 20241217, end: 20250113
  13. LISDEXAMFETAMINE DIMESYLATE [Concomitant]
     Active Substance: LISDEXAMFETAMINE DIMESYLATE
     Dosage: 40 UNK
     Route: 065
     Dates: start: 20250114

REACTIONS (2)
  - Skin irritation [Unknown]
  - Allodynia [Recovered/Resolved]

NARRATIVE: CASE EVENT DATE: 20250108
